FAERS Safety Report 7687329-9 (Version None)
Quarter: 2011Q3

REPORT INFORMATION
  Report Type: 
  Country: None (occurrence: None)
  Receive Date: 20110816
  Receipt Date: 20110804
  Transmission Date: 20111222
  Serious: Yes (Hospitalization)
  Sender: FDA-Public Use
  Company Number: US-CELGENEUS-163-CCAZA-11071672

PATIENT
  Sex: Female
  Weight: 107.9 kg

DRUGS (8)
  1. AZACITIDINE [Suspect]
     Indication: UTERINE CANCER
     Dosage: 75 MILLIGRAM/SQ. METER
     Route: 058
     Dates: start: 20110606, end: 20110610
  2. ACTOS [Concomitant]
     Indication: DIABETES MELLITUS
     Dosage: 15 MILLIGRAM
     Route: 048
     Dates: start: 20060101
  3. METFORMIN HCL [Concomitant]
     Indication: DIABETES MELLITUS
     Dosage: 500 MILLIGRAM
     Route: 048
     Dates: start: 20010101
  4. FERROUS SULFATE TAB [Concomitant]
     Indication: IRON DEFICIENCY
     Dosage: 1 DOSAGE FORMS
     Route: 048
     Dates: start: 20060101
  5. PROTONIX [Concomitant]
     Route: 065
  6. RED BLOOD CELLS [Concomitant]
     Dosage: 300 MILLILITER
     Route: 041
     Dates: start: 20110713
  7. AZACITIDINE [Suspect]
     Dosage: 75 MILLIGRAM/SQ. METER
     Route: 058
     Dates: start: 20110705, end: 20110712
  8. MAGNESIUM SULFATE [Concomitant]
     Dosage: 1 DOSAGE FORMS
     Route: 048
     Dates: start: 20100101

REACTIONS (2)
  - HYPONATRAEMIA [None]
  - NAUSEA [None]
